FAERS Safety Report 16911290 (Version 1)
Quarter: 2019Q4

REPORT INFORMATION
  Report Type: Other
  Country: CN (occurrence: CN)
  Receive Date: 20191013
  Receipt Date: 20191013
  Transmission Date: 20200122
  Serious: Yes (Life-Threatening)
  Sender: FDA-Public Use
  Company Number: CN-JIANGSU HENGRUI MEDICINE CO., LTD.-2075593

PATIENT
  Age: 30 Year
  Sex: Male
  Weight: 70 kg

DRUGS (6)
  1. PROPOFOL INJECTION [Suspect]
     Active Substance: PROPOFOL
     Route: 040
     Dates: start: 20190924, end: 20190924
  2. SUFENTANIL CITRATE INJECTION [Suspect]
     Active Substance: SUFENTANIL CITRATE
     Route: 040
     Dates: start: 20190924, end: 20190924
  3. CISATRACURIUM BESYLATE INJECTION USP, 20 MG/10 ML (2 MG/ML) MULTI-DOSE [Suspect]
     Active Substance: CISATRACURIUM BESYLATE
     Indication: CALCULUS URINARY
     Route: 040
     Dates: start: 20190924, end: 20190924
  4. CEFAZOLIN SODIUM FOR INJECTION [Suspect]
     Active Substance: CEFAZOLIN SODIUM
     Route: 041
     Dates: start: 20190924, end: 20190924
  5. SODIUM CHLORIDE INJECTION [Concomitant]
     Active Substance: SODIUM CHLORIDE
     Route: 041
     Dates: start: 20190924, end: 20190924
  6. ETOMIDATE EMULSION INJECTION [Suspect]
     Active Substance: ETOMIDATE
     Route: 040
     Dates: start: 20190924, end: 20190924

REACTIONS (1)
  - Anaphylactic shock [Recovering/Resolving]

NARRATIVE: CASE EVENT DATE: 20190924
